FAERS Safety Report 21794512 (Version 65)
Quarter: 2025Q2

REPORT INFORMATION
  Report Type: Report from Study
  Country: US (occurrence: US)
  Receive Date: 20221229
  Receipt Date: 20250404
  Transmission Date: 20250717
  Serious: Yes (Other)
  Sender: TAKEDA
  Company Number: US-TAKEDA-2022TUS102369

PATIENT
  Age: 5 Year
  Sex: Female
  Weight: 18 kg

DRUGS (35)
  1. HUMAN IMMUNOGLOBULIN G [Suspect]
     Active Substance: HUMAN IMMUNOGLOBULIN G
     Indication: Immunodeficiency common variable
     Dosage: 3 GRAM, 1/WEEK
     Dates: start: 20221208
  2. HUMAN IMMUNOGLOBULIN G [Suspect]
     Active Substance: HUMAN IMMUNOGLOBULIN G
     Indication: Turner^s syndrome
     Dosage: 4 GRAM, 1/WEEK
  3. HUMAN IMMUNOGLOBULIN G [Suspect]
     Active Substance: HUMAN IMMUNOGLOBULIN G
     Dosage: 4 GRAM, Q2WEEKS
  4. HUMAN IMMUNOGLOBULIN G [Suspect]
     Active Substance: HUMAN IMMUNOGLOBULIN G
     Dosage: 4 GRAM, 3/MONTH
  5. HUMAN IMMUNOGLOBULIN G [Suspect]
     Active Substance: HUMAN IMMUNOGLOBULIN G
  6. HYQVIA [Suspect]
     Active Substance: HUMAN IMMUNOGLOBULIN G\HYALURONIDASE (HUMAN RECOMBINANT)
     Indication: Immunodeficiency common variable
     Dosage: 10 GRAM, Q4WEEKS
     Dates: start: 20250113
  7. HYQVIA [Suspect]
     Active Substance: HUMAN IMMUNOGLOBULIN G\HYALURONIDASE (HUMAN RECOMBINANT)
     Indication: Turner^s syndrome
  8. HIZENTRA [Suspect]
     Active Substance: HUMAN IMMUNOGLOBULIN G
     Indication: Product used for unknown indication
  9. ACETAMINOPHEN [Concomitant]
     Active Substance: ACETAMINOPHEN
  10. EPINEPHRINE [Concomitant]
     Active Substance: EPINEPHRINE
  11. ACYCLOVIR [Concomitant]
     Active Substance: ACYCLOVIR
  12. FLOVENT [Concomitant]
     Active Substance: FLUTICASONE PROPIONATE
  13. ADDERALL [Concomitant]
     Active Substance: AMPHETAMINE ASPARTATE\AMPHETAMINE SULFATE\DEXTROAMPHETAMINE SACCHARATE\DEXTROAMPHETAMINE SULFATE
  14. ZANTAC [Concomitant]
     Active Substance: RANITIDINE HYDROCHLORIDE
  15. FAMOTIDINE [Concomitant]
     Active Substance: FAMOTIDINE
  16. MUPIROCIN [Concomitant]
     Active Substance: MUPIROCIN
  17. AMOXICILLIN [Concomitant]
     Active Substance: AMOXICILLIN
  18. PULMICORT TURBUHALER [Concomitant]
     Active Substance: BUDESONIDE
  19. CETIRIZINE HYDROCHLORIDE [Concomitant]
     Active Substance: CETIRIZINE HYDROCHLORIDE
  20. IPRATROPIUM BROMIDE [Concomitant]
     Active Substance: IPRATROPIUM BROMIDE
  21. Lmx [Concomitant]
  22. DIPHENHYDRAMINE [Concomitant]
     Active Substance: DIPHENHYDRAMINE
  23. BUDESONIDE [Concomitant]
     Active Substance: BUDESONIDE
  24. Norditropine Flexpro [Concomitant]
  25. CEFDINIR [Concomitant]
     Active Substance: CEFDINIR
  26. NYSTATIN AND TRIAMCINOLONE [Concomitant]
     Active Substance: NYSTATIN\TRIAMCINOLONE ACETONIDE
  27. ALBUTEROL SULFATE [Concomitant]
     Active Substance: ALBUTEROL SULFATE
  28. FLUTICASONE PROPIONATE HFA [Concomitant]
     Active Substance: FLUTICASONE PROPIONATE
  29. LIDOCAINE [Concomitant]
     Active Substance: LIDOCAINE
  30. SODIUM CHLORIDE [Concomitant]
     Active Substance: SODIUM CHLORIDE
  31. NGENLA [Concomitant]
     Active Substance: SOMATROGON-GHLA
     Indication: Product used for unknown indication
  32. LAMISIL AT [Concomitant]
     Active Substance: TERBINAFINE HYDROCHLORIDE
     Indication: Product used for unknown indication
  33. BUDESONIDE\FORMOTEROL FUMARATE [Concomitant]
     Active Substance: BUDESONIDE\FORMOTEROL FUMARATE
     Indication: Product used for unknown indication
  34. XOPENEX HFA [Concomitant]
     Active Substance: LEVALBUTEROL TARTRATE
     Indication: Product used for unknown indication
  35. ZYRTEC [Concomitant]
     Active Substance: CETIRIZINE HYDROCHLORIDE
     Indication: Product used for unknown indication

REACTIONS (66)
  - Pseudomonas infection [Unknown]
  - Pneumonia staphylococcal [Unknown]
  - Pneumococcal infection [Recovering/Resolving]
  - Facial paralysis [Unknown]
  - Pneumonia pneumococcal [Unknown]
  - Streptococcal infection [Unknown]
  - Respiratory tract infection [Not Recovered/Not Resolved]
  - Gastroenteritis viral [Recovering/Resolving]
  - Dysphagia [Unknown]
  - Productive cough [Not Recovered/Not Resolved]
  - Moraxella infection [Unknown]
  - Gastrointestinal infection [Unknown]
  - Culture positive [Unknown]
  - Body temperature abnormal [Recovering/Resolving]
  - Dyskinesia [Recovering/Resolving]
  - Infusion site discharge [Unknown]
  - Heart rate abnormal [Recovering/Resolving]
  - Infusion site irritation [Unknown]
  - Insurance issue [Unknown]
  - Infusion related reaction [Unknown]
  - Illness [Unknown]
  - Nasal discharge discolouration [Unknown]
  - Ear infection [Unknown]
  - Fungal infection [Unknown]
  - Staphylococcal infection [Unknown]
  - Product dose omission issue [Unknown]
  - Product use issue [Unknown]
  - Gastric infection [Unknown]
  - Medical device site infection [Unknown]
  - Pharyngeal swelling [Unknown]
  - Medical device site discharge [Unknown]
  - Inflammation [Unknown]
  - Screaming [Unknown]
  - Bite [Unknown]
  - Ear pain [Unknown]
  - Upper respiratory tract infection [Unknown]
  - Influenza [Recovering/Resolving]
  - Feeling abnormal [Unknown]
  - Agitation [Unknown]
  - Nasal congestion [Unknown]
  - Rhinorrhoea [Unknown]
  - Heart rate increased [Unknown]
  - Muscular weakness [Recovering/Resolving]
  - Injection site swelling [Unknown]
  - Infusion site oedema [Unknown]
  - Infusion site bruising [Unknown]
  - Swelling [Unknown]
  - Wheezing [Recovering/Resolving]
  - Oedema peripheral [Unknown]
  - Lethargy [Recovering/Resolving]
  - Rash [Unknown]
  - Contusion [Unknown]
  - Injection site erythema [Unknown]
  - Oedema [Unknown]
  - Malaise [Unknown]
  - Flushing [Unknown]
  - Cough [Not Recovered/Not Resolved]
  - Erythema [Unknown]
  - Hyperhidrosis [Unknown]
  - Vomiting [Not Recovered/Not Resolved]
  - Pyrexia [Not Recovered/Not Resolved]
  - Infusion site pain [Unknown]
  - Diarrhoea [Unknown]
  - Nausea [Unknown]
  - Fatigue [Unknown]
  - Headache [Recovered/Resolved]

NARRATIVE: CASE EVENT DATE: 20230228
